FAERS Safety Report 18726599 (Version 1)
Quarter: 2021Q1

REPORT INFORMATION
  Report Type: Spontaneous
  Country: FR (occurrence: FR)
  Receive Date: 20210112
  Receipt Date: 20210112
  Transmission Date: 20210419
  Serious: Yes (Other)
  Sender: FDA-Public Use
  Company Number: FR-ROCHE-2747293

PATIENT
  Age: 69 Year
  Sex: Female

DRUGS (3)
  1. CLOMIPRAMINE HYDROCHLORIDE. [Suspect]
     Active Substance: CLOMIPRAMINE HYDROCHLORIDE
     Indication: PSYCHIATRIC SYMPTOM
     Dosage: DATE OF MOST RECENT DOSE: 16/OCT/2020
     Route: 048
     Dates: start: 20200928
  2. DIAZEPAM. [Suspect]
     Active Substance: DIAZEPAM
     Indication: PSYCHIATRIC SYMPTOM
     Route: 048
     Dates: start: 20201005
  3. HAVLANE [Concomitant]
     Active Substance: LOPRAZOLAM

REACTIONS (2)
  - Gait disturbance [Recovered/Resolved]
  - Tremor [Recovered/Resolved]

NARRATIVE: CASE EVENT DATE: 20201014
